FAERS Safety Report 4756941-9 (Version None)
Quarter: 2005Q3

REPORT INFORMATION
  Report Type: 
  Country: None (occurrence: None)
  Receive Date: 20050830
  Receipt Date: 20050310
  Transmission Date: 20060218
  Serious: Yes (Hospitalization)
  Sender: FDA-Public Use
  Company Number: US-MERCK-0503USA01891

PATIENT
  Age: 50 Year
  Sex: Female
  Weight: 127 kg

DRUGS (10)
  1. VIOXX [Suspect]
     Indication: FIBROMYALGIA
     Route: 048
     Dates: start: 20020319, end: 20021127
  2. CELEXA [Concomitant]
     Indication: DEPRESSION
     Route: 065
     Dates: start: 20000919
  3. CELEXA [Concomitant]
     Indication: ANXIETY
     Route: 065
     Dates: start: 20000919
  4. REMERON [Concomitant]
     Indication: INSOMNIA
     Route: 065
     Dates: start: 20000919
  5. WELLBUTRIN [Concomitant]
     Indication: DEPRESSION
     Route: 065
     Dates: start: 20000919
  6. WELLBUTRIN [Concomitant]
     Indication: ANXIETY
     Route: 065
     Dates: start: 20000919
  7. GLYBURIDE [Concomitant]
     Indication: DIABETES MELLITUS NON-INSULIN-DEPENDENT
     Route: 065
     Dates: start: 19950801
  8. AVANDIA [Concomitant]
     Indication: DIABETES MELLITUS NON-INSULIN-DEPENDENT
     Route: 065
     Dates: start: 19950801
  9. ALDACTONE [Concomitant]
     Route: 065
     Dates: start: 19870101
  10. NAPROXEN [Concomitant]
     Indication: PAIN
     Route: 065
     Dates: start: 20021127

REACTIONS (6)
  - ANXIETY [None]
  - DEPRESSION [None]
  - INSOMNIA [None]
  - MYOCARDIAL INFARCTION [None]
  - TRANSIENT ISCHAEMIC ATTACK [None]
  - VENTRICULAR EXTRASYSTOLES [None]
